FAERS Safety Report 21192947 (Version 2)
Quarter: 2022Q3

REPORT INFORMATION
  Report Type: Spontaneous
  Country: US (occurrence: US)
  Receive Date: 20220810
  Receipt Date: 20220914
  Transmission Date: 20221026
  Serious: Yes (Other)
  Sender: FDA-Public Use
  Company Number: US-SA-SAC20220804001372

PATIENT
  Age: 60 Year
  Sex: Female

DRUGS (2)
  1. AUBAGIO [Suspect]
     Active Substance: TERIFLUNOMIDE
     Indication: Multiple sclerosis
     Dosage: 14 MG, QD
     Route: 048
  2. AUBAGIO [Suspect]
     Active Substance: TERIFLUNOMIDE
     Dosage: 1 DF, QD
     Route: 048
     Dates: start: 202207

REACTIONS (7)
  - Haematochezia [Unknown]
  - Urinary retention [Unknown]
  - Micturition urgency [Recovered/Resolved]
  - Haematuria [Unknown]
  - Dysuria [Unknown]
  - Memory impairment [Unknown]
  - Paraesthesia [Unknown]
